FAERS Safety Report 23229122 (Version 1)
Quarter: 2023Q4

REPORT INFORMATION
  Report Type: Spontaneous
  Country: IT (occurrence: IT)
  Receive Date: 20231127
  Receipt Date: 20231127
  Transmission Date: 20240109
  Serious: Yes (Hospitalization)
  Sender: FDA-Public Use
  Company Number: IT-MINISAL02-955014

PATIENT
  Age: 59 Year
  Sex: Female

DRUGS (1)
  1. LAMOTRIGINE [Suspect]
     Active Substance: LAMOTRIGINE
     Indication: Product used for unknown indication
     Dosage: 300 MILLIGRAM (1 COMPRESSA DA 300 MG, UNICA DOSE)
     Route: 048
     Dates: start: 20231112, end: 20231112

REACTIONS (4)
  - Confusional state [Recovering/Resolving]
  - Vertigo [Recovering/Resolving]
  - Disorientation [Recovering/Resolving]
  - Medication error [Recovering/Resolving]

NARRATIVE: CASE EVENT DATE: 20231112
